FAERS Safety Report 4657291-1 (Version None)
Quarter: 2005Q2

REPORT INFORMATION
  Report Type: 
  Country: None (occurrence: None)
  Receive Date: 20050506
  Receipt Date: 20050422
  Transmission Date: 20051028
  Serious: Yes (Death, Other)
  Sender: FDA-Public Use
  Company Number: USA-2005-0019342

PATIENT
  Age: 29 Year
  Sex: Female
  Weight: 77.6 kg

DRUGS (4)
  1. OXYCONTIN [Suspect]
     Dosage: MG
  2. ALPRAZOLAM [Suspect]
     Dosage: MG
  3. CANABINOIDS (CANNABINOIDS) [Suspect]
  4. NORTRIPTYLINE (NORTHRIPTYLINE) [Suspect]
     Indication: METASTATIC NEOPLASM

REACTIONS (21)
  - ABNORMAL BEHAVIOUR [None]
  - ACCIDENTAL DEATH [None]
  - ACCIDENTAL OVERDOSE [None]
  - APNOEA [None]
  - BLOOD CANNABINOIDS INCREASED [None]
  - BRADYCARDIA [None]
  - BRONCHOPNEUMONIA [None]
  - CARDIAC ARREST [None]
  - COMA [None]
  - CONFUSIONAL STATE [None]
  - DRUG TOXICITY [None]
  - DYSARTHRIA [None]
  - LETHARGY [None]
  - MYOCARDIAL INFARCTION [None]
  - PSYCHOMOTOR RETARDATION [None]
  - PULMONARY OEDEMA [None]
  - PULSE ABSENT [None]
  - PULSE PRESSURE DECREASED [None]
  - RESPIRATION ABNORMAL [None]
  - SELF INJURIOUS BEHAVIOUR [None]
  - URINE CANNABINOIDS INCREASED [None]
